FAERS Safety Report 5201522-6 (Version None)
Quarter: 2006Q4

REPORT INFORMATION
  Report Type: 
  Country: None (occurrence: None)
  Receive Date: 20061004
  Receipt Date: 20060720
  Transmission Date: 20070319
  Serious: Yes (Other)
  Sender: FDA-Public Use
  Company Number: US200607003572

PATIENT
  Age: 44 Year
  Sex: Female

DRUGS (3)
  1. ALIMTA [Suspect]
     Indication: SMALL CELL LUNG CANCER STAGE UNSPECIFIED
     Dosage: 500 MG/M2, INTRAVENOUS
     Route: 042
     Dates: start: 20060630
  2. FOLIC ACID [Concomitant]
  3. VITAMIN B12 [Concomitant]

REACTIONS (2)
  - ALANINE AMINOTRANSFERASE INCREASED [None]
  - ASPARTATE AMINOTRANSFERASE INCREASED [None]
